FAERS Safety Report 21538652 (Version 1)
Quarter: 2022Q4

REPORT INFORMATION
  Report Type: Spontaneous
  Country: US (occurrence: US)
  Receive Date: 20221102
  Receipt Date: 20221102
  Transmission Date: 20230113
  Serious: Yes (Other)
  Sender: FDA-Public Use
  Company Number: US-SUN PHARMACEUTICAL INDUSTRIES LTD-2022R1-361378

PATIENT
  Age: 71 Year
  Sex: Male

DRUGS (1)
  1. METOPROLOL [Suspect]
     Active Substance: METOPROLOL
     Indication: Product used for unknown indication
     Dosage: 25 MILLIGRAM, BID
     Route: 065

REACTIONS (6)
  - Sinus bradycardia [Recovering/Resolving]
  - Hypotension [Recovering/Resolving]
  - Blood potassium increased [Recovering/Resolving]
  - Blood creatinine increased [Recovering/Resolving]
  - Blood bicarbonate abnormal [Recovering/Resolving]
  - BRASH syndrome [Recovering/Resolving]
